FAERS Safety Report 12634089 (Version 1)
Quarter: 2016Q3

REPORT INFORMATION
  Report Type: Spontaneous
  Country: None (occurrence: None)
  Receive Date: 20160808
  Receipt Date: 20160808
  Transmission Date: 20161109
  Serious: No
  Sender: FDA-Public Use
  Company Number: None

PATIENT
  Age: 74 Year
  Sex: Male

DRUGS (1)
  1. QUININE, 324MG [Suspect]
     Active Substance: QUININE
     Route: 048

REACTIONS (1)
  - Product quality issue [None]

NARRATIVE: CASE EVENT DATE: 20160729
